FAERS Safety Report 9849434 (Version 1)
Quarter: 2014Q1

REPORT INFORMATION
  Report Type: Spontaneous
  Country: CA (occurrence: CA)
  Receive Date: 20140128
  Receipt Date: 20140128
  Transmission Date: 20141002
  Serious: Yes (Life-Threatening)
  Sender: FDA-Public Use
  Company Number: CA-B.I. PHARMACEUTICALS,INC./RIDGEFIELD-2014-BI-03441CN

PATIENT
  Age: 57 Year
  Sex: Male

DRUGS (3)
  1. SPIRIVA [Suspect]
     Dosage: 1 DOSAGE FORM EVERY 1 DAY
     Route: 055
  2. AZITHROMYCIN [Concomitant]
     Route: 065
  3. SALBUTAMOL [Concomitant]
     Route: 055

REACTIONS (4)
  - Respiratory arrest [Recovered/Resolved]
  - Dyspnoea [Recovered/Resolved]
  - Cough [Recovered/Resolved]
  - Sleep disorder [Recovered/Resolved]
